FAERS Safety Report 5315778-2 (Version None)
Quarter: 2007Q2

REPORT INFORMATION
  Report Type: 
  Country: None (occurrence: None)
  Receive Date: 20070503
  Receipt Date: 20070501
  Transmission Date: 20071010
  Serious: Yes (Other)
  Sender: FDA-Public Use
  Company Number: US-GLAXOSMITHKLINE-A0642489A

PATIENT
  Age: 71 Year
  Sex: Female

DRUGS (2)
  1. ALBUTEROL [Suspect]
     Indication: MULTIPLE ALLERGIES
     Route: 055
  2. NASONEX [Concomitant]
     Indication: MULTIPLE ALLERGIES

REACTIONS (3)
  - CHOKING [None]
  - COUGH [None]
  - DRY THROAT [None]
